FAERS Safety Report 16348100 (Version 2)
Quarter: 2019Q2

REPORT INFORMATION
  Report Type: Spontaneous
  Country: ES (occurrence: ES)
  Receive Date: 20190523
  Receipt Date: 20190603
  Transmission Date: 20190711
  Serious: Yes (Death, Hospitalization)
  Sender: FDA-Public Use
  Company Number: ES-B.I. PHARMACEUTICALS,INC./RIDGEFIELD-2019-BI-022724

PATIENT
  Age: 80 Year
  Sex: Male

DRUGS (1)
  1. OFEV [Suspect]
     Active Substance: NINTEDANIB
     Indication: IDIOPATHIC PULMONARY FIBROSIS
     Route: 065
     Dates: start: 20190131, end: 20190507

REACTIONS (7)
  - Ill-defined disorder [Unknown]
  - Weight decreased [Unknown]
  - Idiopathic pulmonary fibrosis [Fatal]
  - Atrial fibrillation [Unknown]
  - Drug ineffective [Unknown]
  - Decreased appetite [Unknown]
  - Respiratory failure [Fatal]

NARRATIVE: CASE EVENT DATE: 201904
